FAERS Safety Report 24861999 (Version 2)
Quarter: 2025Q1

REPORT INFORMATION
  Report Type: Spontaneous
  Country: DE (occurrence: DE)
  Receive Date: 20250120
  Receipt Date: 20250207
  Transmission Date: 20250409
  Serious: No
  Sender: ASTELLAS
  Company Number: DE-ASTELLAS-2025-AER-003210

PATIENT
  Age: 62 Year
  Sex: Female

DRUGS (1)
  1. VEOZAH [Suspect]
     Active Substance: FEZOLINETANT
     Indication: Product used for unknown indication
     Route: 065
     Dates: start: 2024

REACTIONS (3)
  - Abdominal pain upper [Unknown]
  - Fatigue [Unknown]
  - Hepatic pain [Unknown]
